FAERS Safety Report 8027868-4 (Version None)
Quarter: 2012Q1

REPORT INFORMATION
  Report Type: 
  Country: None (occurrence: None)
  Receive Date: 20120104
  Receipt Date: 20111222
  Transmission Date: 20120608
  Serious: Yes (Life-Threatening, Hospitalization)
  Sender: FDA-Public Use
  Company Number: 2011S1001641

PATIENT
  Age: 59 Year
  Sex: Male
  Weight: 46 kg

DRUGS (14)
  1. MAGNESIUM OXIDE (MAGNESIUM OXIDE) [Suspect]
     Indication: CONSTIPATION
     Dosage: 2 GM; TID; PO
     Route: 048
     Dates: start: 20111014, end: 20111110
  2. CARVEDILOL [Suspect]
     Indication: CARDIAC FAILURE CHRONIC
     Dosage: 2.5 MG; BID; PO
     Route: 048
     Dates: start: 20111009, end: 20111110
  3. ENALAPRIL MALEATE [Suspect]
     Indication: CARDIAC FAILURE CHRONIC
     Dosage: 2.5 MG; 1X; PO
     Route: 048
     Dates: start: 20111011, end: 20111110
  4. ENALAPRIL MALEATE [Suspect]
     Indication: CARDIAC FAILURE CHRONIC
     Dosage: 2.5 MG; 1X; PO
     Route: 048
     Dates: start: 20111117, end: 20111124
  5. CELOOP (TEPRENOINE) [Suspect]
     Indication: PROPHYLAXIS AGAINST GASTROINTESTINAL ULCER
     Dosage: 50 MG; TID; PO
     Route: 048
     Dates: start: 20111013, end: 20111110
  6. ASPIRIN [Suspect]
     Dosage: 100 MG; 1X; PO
     Route: 048
     Dates: start: 20111003, end: 20111110
  7. ASPIRIN [Suspect]
     Dosage: 100 MG; 1X; PO
     Route: 048
     Dates: start: 20111117, end: 20111124
  8. PLAVIX [Suspect]
     Indication: CARDIOVASCULAR EVENT PROPHYLAXIS
     Dosage: 75 MG; 1X; PO
     Route: 048
     Dates: start: 20111013, end: 20111110
  9. LANSOPRAZOLE [Suspect]
     Indication: PROPHYLAXIS AGAINST GASTROINTESTINAL ULCER
     Dosage: 15 MG; 1X; PO
     Route: 048
     Dates: start: 20111005, end: 20111110
  10. WARFARIN SODIUM [Suspect]
     Indication: THROMBOSIS PROPHYLAXIS
     Dosage: 3 MG; 1X; PO
     Route: 048
     Dates: start: 20111015, end: 20111110
  11. LVALO (PITAVASTATIN) [Suspect]
     Indication: HYPERCHOLESTEROLAEMIA
     Dosage: 1 MG; 1X; PO
     Route: 048
     Dates: start: 20111026, end: 20111110
  12. PURSENNID /00142207/ (SENNA ALEXANDRIA LEAF) [Suspect]
     Indication: CONSTIPATION
     Dosage: 24 MG; BID; PO
     Route: 048
     Dates: start: 20111014, end: 20111110
  13. LASIX /0032601/ (FUROSEMIDE) [Suspect]
     Indication: CARDIAC FAILURE CHRONIC
     Dosage: ;PO
     Route: 048
     Dates: start: 20111116, end: 20111124
  14. LASIX /0032601/ (FUROSEMIDE) [Suspect]
     Indication: CARDIAC FAILURE CHRONIC
     Dosage: ;PO
     Route: 048
     Dates: end: 20111110

REACTIONS (3)
  - GRANULOCYTOPENIA [None]
  - PHARYNGOTONSILLITIS [None]
  - ORAL CANDIDIASIS [None]
